FAERS Safety Report 17211207 (Version 2)
Quarter: 2020Q3

REPORT INFORMATION
  Report Type: Spontaneous
  Country: CO (occurrence: CO)
  Receive Date: 20191228
  Receipt Date: 20200729
  Transmission Date: 20201102
  Serious: Yes (Hospitalization, Other)
  Sender: FDA-Public Use
  Company Number: CO-EMD SERONO-9137061

PATIENT
  Age: 45 Year
  Sex: Female
  Weight: 78 kg

DRUGS (6)
  1. REVOLADE [Suspect]
     Active Substance: ELTROMBOPAG
     Indication: IMMUNE THROMBOCYTOPENIA
     Route: 048
     Dates: start: 20181227, end: 201903
  2. REVOLADE [Suspect]
     Active Substance: ELTROMBOPAG
     Route: 048
     Dates: start: 201909, end: 201912
  3. REVOLADE [Suspect]
     Active Substance: ELTROMBOPAG
     Route: 048
     Dates: start: 201912
  4. REVOLADE [Suspect]
     Active Substance: ELTROMBOPAG
     Dosage: DOSE INCREASED TO 75 MG ONCE DAILY (TOOK 1 TABLET OF 50 MG AND ALSO HALF OF IT TO MAKE 75 MG)
     Route: 048
     Dates: start: 201906, end: 201909
  5. METFORMIN [Suspect]
     Active Substance: METFORMIN HYDROCHLORIDE
     Indication: PRODUCT USED FOR UNKNOWN INDICATION
  6. PREDNISOLONE. [Concomitant]
     Active Substance: PREDNISOLONE
     Indication: PRODUCT USED FOR UNKNOWN INDICATION

REACTIONS (9)
  - Platelet count decreased [Recovering/Resolving]
  - Thyroid disorder [Unknown]
  - Influenza [Unknown]
  - Cataract [Unknown]
  - Blood pressure abnormal [Unknown]
  - Haematoma [Unknown]
  - Alopecia [Unknown]
  - Headache [Unknown]
  - Eye disorder [Unknown]

NARRATIVE: CASE EVENT DATE: 20181227
